FAERS Safety Report 20973430 (Version 1)
Quarter: 2022Q2

REPORT INFORMATION
  Report Type: Spontaneous
  Country: CA (occurrence: CA)
  Receive Date: 20220617
  Receipt Date: 20220617
  Transmission Date: 20220721
  Serious: Yes (Hospitalization, Other)
  Sender: FDA-Public Use
  Company Number: CA-TEVA-2022-CA-2047025

PATIENT
  Age: 40 Year
  Sex: Female

DRUGS (27)
  1. METHOTREXATE [Suspect]
     Active Substance: METHOTREXATE
     Indication: Rheumatic fever
     Route: 065
  2. METHOTREXATE [Suspect]
     Active Substance: METHOTREXATE
     Route: 058
  3. METHOTREXATE [Suspect]
     Active Substance: METHOTREXATE
     Route: 058
  4. COLCHICINE [Suspect]
     Active Substance: COLCHICINE
     Indication: Mouth ulceration
     Route: 065
  5. DEXILANT [Concomitant]
     Active Substance: DEXLANSOPRAZOLE
     Indication: Product used for unknown indication
     Route: 065
  6. IMURAN [Concomitant]
     Active Substance: AZATHIOPRINE
     Indication: Product used for unknown indication
     Route: 048
  7. MEDROL [Concomitant]
     Active Substance: METHYLPREDNISOLONE
     Indication: Product used for unknown indication
     Route: 065
  8. MEDROL [Concomitant]
     Active Substance: METHYLPREDNISOLONE
     Route: 065
  9. MEDROL [Concomitant]
     Active Substance: METHYLPREDNISOLONE
     Route: 065
  10. MEDROL [Concomitant]
     Active Substance: METHYLPREDNISOLONE
     Route: 065
  11. MEDROL [Concomitant]
     Active Substance: METHYLPREDNISOLONE
     Route: 065
  12. MEDROL [Concomitant]
     Active Substance: METHYLPREDNISOLONE
     Route: 065
  13. MEDROL [Concomitant]
     Active Substance: METHYLPREDNISOLONE
     Dosage: 2 MILLIGRAM DAILY;
     Route: 065
  14. MEDROL [Concomitant]
     Active Substance: METHYLPREDNISOLONE
     Dosage: 4 MILLIGRAM DAILY;
     Route: 065
  15. MEDROL [Concomitant]
     Active Substance: METHYLPREDNISOLONE
     Dosage: 6 MILLIGRAM DAILY;
     Route: 065
  16. MEDROL [Concomitant]
     Active Substance: METHYLPREDNISOLONE
     Route: 065
  17. MEDROL [Concomitant]
     Active Substance: METHYLPREDNISOLONE
     Route: 065
  18. MEDROL [Concomitant]
     Active Substance: METHYLPREDNISOLONE
     Route: 065
  19. INFLIXIMAB [Concomitant]
     Active Substance: INFLIXIMAB
     Indication: Product used for unknown indication
     Route: 065
  20. INFLIXIMAB [Concomitant]
     Active Substance: INFLIXIMAB
     Route: 065
  21. INFLIXIMAB [Concomitant]
     Active Substance: INFLIXIMAB
     Route: 065
  22. INFLIXIMAB [Concomitant]
     Active Substance: INFLIXIMAB
     Route: 065
  23. PREDNISONE/RITUXIMAB [Concomitant]
     Indication: Product used for unknown indication
     Route: 048
  24. PREDNISONE/RITUXIMAB [Concomitant]
     Route: 048
  25. PREDNISONE/RITUXIMAB [Concomitant]
     Route: 048
  26. PREDNISONE/RITUXIMAB [Concomitant]
     Dosage: 5 MILLIGRAM DAILY;
     Route: 048
  27. PREDNISONE/RITUXIMAB [Concomitant]
     Route: 065

REACTIONS (30)
  - Arthralgia [Recovered/Resolved]
  - Behcet^s syndrome [Recovered/Resolved]
  - Colitis [Recovered/Resolved]
  - Deafness [Recovered/Resolved]
  - Diarrhoea [Recovered/Resolved]
  - Drug ineffective [Recovered/Resolved]
  - Eye pain [Recovered/Resolved]
  - Faecal calprotectin [Recovered/Resolved]
  - Fatigue [Recovered/Resolved]
  - Gastritis [Recovered/Resolved]
  - Gastrointestinal disorder [Recovered/Resolved]
  - Groin pain [Recovered/Resolved]
  - Haematuria [Recovered/Resolved]
  - Headache [Recovered/Resolved]
  - Inflammation [Recovered/Resolved]
  - Inflammatory pain [Recovered/Resolved]
  - Intraocular pressure increased [Recovered/Resolved]
  - Myositis [Recovered/Resolved]
  - Nausea [Recovered/Resolved]
  - Optic neuritis [Recovered/Resolved]
  - Pain in extremity [Recovered/Resolved]
  - Paresis [Recovered/Resolved]
  - Polyarthritis [Recovered/Resolved]
  - Product use in unapproved indication [Recovered/Resolved]
  - Pyrexia [Recovered/Resolved]
  - Sjogren^s syndrome [Recovered/Resolved]
  - Suspiciousness [Recovered/Resolved]
  - Thrombocytosis [Recovered/Resolved]
  - Venous thrombosis [Recovered/Resolved]
  - Vomiting [Recovered/Resolved]
